FAERS Safety Report 5358923-5 (Version None)
Quarter: 2007Q2

REPORT INFORMATION
  Report Type: 
  Country: None (occurrence: None)
  Receive Date: 20070615
  Receipt Date: 20070608
  Transmission Date: 20071010
  Serious: Yes (Hospitalization)
  Sender: FDA-Public Use
  Company Number: B0474310A

PATIENT
  Age: 90 Year
  Sex: Female

DRUGS (1)
  1. ARIXTRA [Suspect]
     Dosage: 5MG PER DAY
     Route: 058
     Dates: start: 20070423, end: 20070503

REACTIONS (3)
  - ANAEMIA [None]
  - GINGIVAL BLEEDING [None]
  - HAEMATOMA [None]
